FAERS Safety Report 23967354 (Version 6)
Quarter: 2024Q4

REPORT INFORMATION
  Report Type: Spontaneous
  Country: US (occurrence: US)
  Receive Date: 20240612
  Receipt Date: 20241002
  Transmission Date: 20250114
  Serious: No
  Sender: DAIICHI
  Company Number: US-DAIICHI SANKYO, INC.-DSU-2024-125924AA

PATIENT
  Age: 22 Year
  Sex: Male

DRUGS (2)
  1. TURALIO [Suspect]
     Active Substance: PEXIDARTINIB HYDROCHLORIDE
     Indication: Synovitis
     Dosage: 250 MG (125MG X 2 CAPSULES BY MOUTH TWICE DAILY) BID
     Route: 048
     Dates: start: 20240529
  2. TURALIO [Suspect]
     Active Substance: PEXIDARTINIB HYDROCHLORIDE
     Indication: Giant cell tumour of tendon sheath

REACTIONS (10)
  - Somnolence [Not Recovered/Not Resolved]
  - Abdominal distension [Unknown]
  - Appetite disorder [Not Recovered/Not Resolved]
  - Hypersomnia [Unknown]
  - Fatigue [Unknown]
  - Decreased appetite [Unknown]
  - Vomiting [Unknown]
  - Nausea [Not Recovered/Not Resolved]
  - Accidental underdose [Unknown]
  - Seasonal affective disorder [Not Recovered/Not Resolved]

NARRATIVE: CASE EVENT DATE: 20240701
